FAERS Safety Report 5287303-6 (Version None)
Quarter: 2007Q2

REPORT INFORMATION
  Report Type: 
  Country: None (occurrence: None)
  Receive Date: 20070404
  Receipt Date: 20070326
  Transmission Date: 20071010
  Serious: Yes (Hospitalization, Other)
  Sender: FDA-Public Use
  Company Number: GB-PFIZER INC-2007024917

PATIENT
  Sex: Female

DRUGS (6)
  1. CARDURA XL (EXTENDED RELEASE) [Suspect]
  2. FUROSEMIDE [Concomitant]
  3. ACETYLSALICYLIC ACID SRT [Concomitant]
  4. ATENOLOL [Concomitant]
  5. ZESTRIL [Concomitant]
  6. PLAVIX [Concomitant]

REACTIONS (7)
  - BLINDNESS UNILATERAL [None]
  - CATARACT [None]
  - CEREBROVASCULAR ACCIDENT [None]
  - DEMENTIA [None]
  - HYPOTENSION [None]
  - MYOCARDIAL INFARCTION [None]
  - SLEEP DISORDER [None]
